FAERS Safety Report 9008764 (Version 3)
Quarter: 2013Q2

REPORT INFORMATION
  Report Type: Report from Study
  Country: MY (occurrence: MY)
  Receive Date: 20130111
  Receipt Date: 20130621
  Transmission Date: 20140414
  Serious: Yes (Hospitalization)
  Sender: FDA-Public Use
  Company Number: MY-ABBOTT-13P-101-1031016-00

PATIENT
  Age: 31 Year
  Sex: Female
  Weight: 34 kg

DRUGS (5)
  1. HUMIRA [Suspect]
     Indication: RHEUMATOID ARTHRITIS
     Dosage: FORTNIGHTLY
     Route: 058
     Dates: start: 20121221
  2. DAFLON [Concomitant]
     Indication: HAEMORRHOIDS
     Dosage: WEEKLY
     Route: 048
     Dates: start: 20121231
  3. ARCOXIA [Concomitant]
     Indication: RHEUMATOID ARTHRITIS
     Dosage: ONCE DAILY
     Route: 048
     Dates: start: 20121231
  4. FOLATE [Concomitant]
     Indication: VITAMIN SUPPLEMENTATION
     Dosage: ONCE DAILY
     Route: 048
     Dates: start: 20060719
  5. METHOTREXATE [Concomitant]
     Indication: RHEUMATOID ARTHRITIS
     Route: 048
     Dates: start: 20060719, end: 20120904

REACTIONS (5)
  - Weight decreased [Recovering/Resolving]
  - Rheumatoid arthritis [Recovering/Resolving]
  - Night sweats [Recovering/Resolving]
  - Tuberculosis [Recovering/Resolving]
  - Pyrexia [Unknown]
